FAERS Safety Report 6819931-8 (Version None)
Quarter: 2010Q3

REPORT INFORMATION
  Report Type: 
  Country: None (occurrence: None)
  Receive Date: 20100707
  Receipt Date: 20100629
  Transmission Date: 20110219
  Serious: Yes (Death, Other)
  Sender: FDA-Public Use
  Company Number: US-AMGEN-QUU407516

PATIENT
  Sex: Female
  Weight: 80 kg

DRUGS (11)
  1. NPLATE [Suspect]
     Indication: IDIOPATHIC THROMBOCYTOPENIC PURPURA
     Route: 058
     Dates: start: 20081201, end: 20081222
  2. NYSTATIN [Concomitant]
     Dates: start: 20010911
  3. CALTRATE [Concomitant]
     Dates: start: 20010911
  4. METFORMIN HCL [Concomitant]
     Dates: start: 20060516
  5. NEXIUM [Concomitant]
     Dates: start: 20070802
  6. AMLODIPINE [Concomitant]
     Dates: start: 20080130
  7. METOPROLOL [Concomitant]
     Dates: start: 20060516
  8. IMDUR [Concomitant]
     Dates: start: 20060516
  9. VITAMIN B-12 [Concomitant]
     Route: 048
     Dates: start: 20060516
  10. FOLIC ACID [Concomitant]
     Dates: start: 20060516
  11. ZOCOR [Concomitant]
     Dates: start: 20060516

REACTIONS (4)
  - ACUTE MYOCARDIAL INFARCTION [None]
  - CARDIAC FAILURE CONGESTIVE [None]
  - CORONARY ARTERY THROMBOSIS [None]
  - SUDDEN DEATH [None]
